FAERS Safety Report 14278932 (Version 1)
Quarter: 2017Q4

REPORT INFORMATION
  Report Type: Spontaneous
  Country: US (occurrence: US)
  Receive Date: 20171212
  Receipt Date: 20171212
  Transmission Date: 20180321
  Serious: Yes (Death)
  Sender: FDA-Public Use
  Company Number: US-PFIZER INC-2017527965

PATIENT
  Age: 78 Year
  Sex: Male
  Weight: 102 kg

DRUGS (1)
  1. VFEND [Suspect]
     Active Substance: VORICONAZOLE
     Dosage: UNK

REACTIONS (5)
  - Acute myeloid leukaemia [Fatal]
  - Hyperlipidaemia [Fatal]
  - Condition aggravated [Fatal]
  - Hypertension [Fatal]
  - Obesity [Fatal]

NARRATIVE: CASE EVENT DATE: 2017
